FAERS Safety Report 6168052-9 (Version None)
Quarter: 2009Q2

REPORT INFORMATION
  Report Type: 
  Country: None (occurrence: None)
  Receive Date: 20090427
  Receipt Date: 20090415
  Transmission Date: 20091009
  Serious: Yes (Hospitalization)
  Sender: FDA-Public Use
  Company Number: BE-ELI_LILLY_AND_COMPANY-BE200903002169

PATIENT
  Sex: Male
  Weight: 84 kg

DRUGS (6)
  1. SOMATROPIN [Suspect]
     Indication: GROWTH HORMONE DEFICIENCY
     Dosage: UNK, UNK
     Dates: start: 20010920, end: 20080101
  2. HYDROCORTISONE [Concomitant]
     Dosage: 12 MG, IN TOTAL PER DAY DIVIDED DOSES
  3. LEVOTHYROXINE SODIUM [Concomitant]
     Dosage: 150 UG, DAILY (1/D)
     Route: 048
  4. TESTOSTERONE [Concomitant]
     Dosage: 40 MG, DAILY (1/D)
     Route: 048
  5. PHENYTOIN [Concomitant]
     Dosage: 100 MG, 3/D
     Route: 048
  6. MINIRIN [Concomitant]
     Dosage: 2.5 ML, UNK
     Route: 045

REACTIONS (1)
  - PITUITARY TUMOUR BENIGN [None]
